FAERS Safety Report 15603928 (Version 11)
Quarter: 2019Q2

REPORT INFORMATION
  Report Type: Report from Study
  Country: US (occurrence: US)
  Receive Date: 20181109
  Receipt Date: 20190620
  Transmission Date: 20190711
  Serious: Yes (Hospitalization, Other)
  Sender: FDA-Public Use
  Company Number: US-ACTELION-A-US2018-175254

PATIENT
  Sex: Female
  Weight: 85.26 kg

DRUGS (7)
  1. LORTAB [Concomitant]
     Active Substance: ACETAMINOPHEN\HYDROCODONE BITARTRATE
  2. ORENITRAM [Concomitant]
     Active Substance: TREPROSTINIL
     Dosage: 0.25 MG, TID
     Dates: start: 201811
  3. TOPIRAMATE. [Concomitant]
     Active Substance: TOPIRAMATE
     Indication: MIGRAINE
  4. TYVASO [Concomitant]
     Active Substance: TREPROSTINIL
     Dosage: 6 BREATHS QID
     Route: 055
     Dates: end: 201811
  5. ELIQUIS [Concomitant]
     Active Substance: APIXABAN
  6. TRACLEER [Suspect]
     Active Substance: BOSENTAN
     Indication: PULMONARY ARTERIAL HYPERTENSION
     Dosage: 125 MG, BID
     Route: 048
     Dates: start: 2004
  7. DILTIAZEM. [Concomitant]
     Active Substance: DILTIAZEM

REACTIONS (19)
  - Gait disturbance [Unknown]
  - Therapy change [Unknown]
  - Decreased appetite [Unknown]
  - Haematemesis [Unknown]
  - Constipation [Unknown]
  - Diarrhoea [Unknown]
  - Vomiting [Unknown]
  - Gastric disorder [Unknown]
  - Headache [Not Recovered/Not Resolved]
  - Malaise [Unknown]
  - Contusion [Unknown]
  - Continuous positive airway pressure [Unknown]
  - Migraine [Unknown]
  - Gastroenteritis viral [Unknown]
  - Weight decreased [Unknown]
  - Transfusion [Unknown]
  - Nasopharyngitis [Unknown]
  - Oxygen saturation decreased [Unknown]
  - Depression [Unknown]

NARRATIVE: CASE EVENT DATE: 2019
